FAERS Safety Report 6933578-4 (Version None)
Quarter: 2010Q3

REPORT INFORMATION
  Report Type: 
  Country: None (occurrence: None)
  Receive Date: 20100820
  Receipt Date: 20100812
  Transmission Date: 20110219
  Serious: Yes (Other)
  Sender: FDA-Public Use
  Company Number: BE-ASTRAZENECA-2010SE35203

PATIENT
  Age: 40 Year
  Sex: Female
  Weight: 40 kg

DRUGS (6)
  1. CRESTOR [Suspect]
     Indication: HYPERCHOLESTEROLAEMIA
     Route: 048
     Dates: start: 20100101, end: 20100726
  2. LAMICTAL [Concomitant]
     Indication: EPILEPSY
  3. VALIUM [Concomitant]
  4. FENOBARBITAL [Concomitant]
     Indication: EPILEPSY
  5. LORMETAZEPAM [Concomitant]
  6. HYDERGINE [Concomitant]

REACTIONS (1)
  - HYPERSOMNIA [None]
